FAERS Safety Report 18514171 (Version 1)
Quarter: 2020Q4

REPORT INFORMATION
  Report Type: Spontaneous
  Country: US (occurrence: US)
  Receive Date: 20201118
  Receipt Date: 20201118
  Transmission Date: 20210114
  Serious: No
  Sender: FDA-Public Use
  Company Number: US-ALLERGAN-2026818US

PATIENT
  Age: 66 Year
  Sex: Female

DRUGS (2)
  1. SYNTHROID [Concomitant]
     Active Substance: LEVOTHYROXINE SODIUM
     Indication: HYPOTHYROIDISM
  2. ALPHAGAN P [Suspect]
     Active Substance: BRIMONIDINE TARTRATE
     Indication: GLAUCOMA
     Dosage: 2 GTT, BID
     Dates: end: 20200614

REACTIONS (4)
  - Oral discomfort [Recovered/Resolved]
  - Therapy cessation [Unknown]
  - Nasal discomfort [Recovered/Resolved]
  - Nasal dryness [Recovered/Resolved]
